FAERS Safety Report 7111426-X (Version None)
Quarter: 2010Q4

REPORT INFORMATION
  Report Type: 
  Country: None (occurrence: None)
  Receive Date: 20101118
  Receipt Date: 20100331
  Transmission Date: 20110411
  Serious: Yes (Hospitalization, Other)
  Sender: FDA-Public Use
  Company Number: US-PFIZER INC-2010041460

PATIENT
  Sex: Male

DRUGS (1)
  1. ZYVOX [Suspect]
     Indication: GANGRENE
     Dosage: 600 MG, 2X/DAY
     Dates: start: 20100301, end: 20100329

REACTIONS (1)
  - PANCYTOPENIA [None]
